FAERS Safety Report 5211152-8 (Version None)
Quarter: 2007Q1

REPORT INFORMATION
  Report Type: 
  Country: None (occurrence: None)
  Receive Date: 20070117
  Receipt Date: 20070105
  Transmission Date: 20070707
  Serious: Yes (Death, Hospitalization)
  Sender: FDA-Public Use
  Company Number: US-PFIZER INC-2005053592

PATIENT
  Sex: Male
  Weight: 56.7 kg

DRUGS (2)
  1. BEXTRA [Suspect]
     Indication: BACK PAIN
     Dates: start: 20021101, end: 20030301
  2. VIOXX [Suspect]

REACTIONS (1)
  - CEREBROVASCULAR ACCIDENT [None]
